FAERS Safety Report 4375855-X (Version None)
Quarter: 2004Q2

REPORT INFORMATION
  Report Type: 
  Country: None (occurrence: None)
  Receive Date: 20040607
  Receipt Date: 20040525
  Transmission Date: 20050107
  Serious: Yes (Other)
  Sender: FDA-Public Use
  Company Number: JP-JNJFOC-20040504578

PATIENT
  Age: 69 Year
  Sex: Male

DRUGS (7)
  1. ITRACONAZOLE [Suspect]
     Dosage: 100 MG,  IN 1 DAY, ORAL
     Route: 048
     Dates: start: 20040419, end: 20040422
  2. OMEPRAZOLE [Suspect]
  3. TAMSULOSIN HYDROCHLORIDE [Concomitant]
  4. CERNITIN POLLEN EXTRACT (CERNILTON) [Concomitant]
  5. ALPRAZOLAM [Concomitant]
  6. MEDAZEPAM [Concomitant]
  7. CLOTIAZEPAM [Concomitant]

REACTIONS (2)
  - BLOOD CREATINE PHOSPHOKINASE INCREASED [None]
  - DRUG INTERACTION [None]
